FAERS Safety Report 6661510-X (Version None)
Quarter: 2010Q1

REPORT INFORMATION
  Report Type: 
  Country: None (occurrence: None)
  Receive Date: 20100331
  Receipt Date: 20100330
  Transmission Date: 20100710
  Serious: Yes (Other)
  Sender: FDA-Public Use
  Company Number: US-B.I. PHARMACEUTICALS,INC./RIDGEFIELD-2010-BP-01719BP

PATIENT
  Sex: Male

DRUGS (13)
  1. AGGRENOX [Suspect]
     Indication: CEREBROVASCULAR ACCIDENT
  2. ASPIRIN [Concomitant]
     Indication: CEREBROVASCULAR ACCIDENT PROPHYLAXIS
  3. DOXAZOSIN [Concomitant]
  4. ACETAMINOPHEN AND HYDROCODONE BITARTRATE [Concomitant]
  5. DICLOFENAC [Concomitant]
  6. CYCLOBENZAPR [Concomitant]
  7. KLOR-CON [Concomitant]
  8. PRAVASTAIN [Concomitant]
  9. FLORSEMIDE [Concomitant]
  10. LOVASTATIN [Concomitant]
  11. METFORMIN (GLUCOPHAGE) [Concomitant]
  12. GLIPIZIDE [Concomitant]
  13. METOPROLOL TARTRATE [Concomitant]

REACTIONS (1)
  - CEREBROVASCULAR ACCIDENT [None]
